FAERS Safety Report 12122584 (Version 1)
Quarter: 2016Q1

REPORT INFORMATION
  Report Type: Report from Study
  Country: CN (occurrence: CN)
  Receive Date: 20160227
  Receipt Date: 20160227
  Transmission Date: 20160526
  Serious: Yes (Death, Other)
  Sender: FDA-Public Use
  Company Number: CN-ACCORD-037244

PATIENT
  Age: 3 Year
  Sex: Female

DRUGS (6)
  1. MYCOPHENOLIC ACID. [Suspect]
     Active Substance: MYCOPHENOLIC ACID
     Indication: ACUTE GRAFT VERSUS HOST DISEASE
     Dates: start: 20130429
  2. ANTITHYMOCYTE IMMUNOGLOBULIN [Concomitant]
     Active Substance: THYMOCYTE IMMUNE GLOBULIN NOS
     Indication: GRAFT VERSUS HOST DISEASE
     Dates: start: 20130429
  3. CYCLOPHOSPHAMIDE/CYCLOPHOSPHAMIDE MONOHYDRATE [Concomitant]
     Indication: GRAFT VERSUS HOST DISEASE
     Dates: start: 20130429
  4. CICLOSPORIN [Suspect]
     Active Substance: CYCLOSPORINE
     Indication: ACUTE GRAFT VERSUS HOST DISEASE
     Dates: start: 20130429
  5. FLUDARABINE [Concomitant]
     Active Substance: FLUDARABINE PHOSPHATE
     Indication: GRAFT VERSUS HOST DISEASE
     Dates: start: 20130429
  6. BUSULFAN [Concomitant]
     Active Substance: BUSULFAN
     Indication: GRAFT VERSUS HOST DISEASE
     Dates: start: 20130429

REACTIONS (5)
  - Cytomegalovirus viraemia [Unknown]
  - Thrombocytopenia [Recovered/Resolved]
  - Shock [Unknown]
  - Epstein-Barr viraemia [Unknown]
  - Varicella zoster virus infection [Fatal]
